FAERS Safety Report 11078770 (Version 1)
Quarter: 2015Q2

REPORT INFORMATION
  Report Type: Spontaneous
  Country: US (occurrence: US)
  Receive Date: 20150430
  Receipt Date: 20150430
  Transmission Date: 20150821
  Serious: Yes (Other)
  Sender: FDA-Public Use
  Company Number: US-PFIZER INC-2015140515

PATIENT
  Age: 40 Year
  Sex: Male
  Weight: 61 kg

DRUGS (1)
  1. LYRICA [Suspect]
     Active Substance: PREGABALIN
     Indication: FIBROMYALGIA
     Dosage: 300 MG, 4X/DAY

REACTIONS (12)
  - Pyrexia [Unknown]
  - Movement disorder [Unknown]
  - Overdose [Unknown]
  - Asthenia [Unknown]
  - Headache [Unknown]
  - Fatigue [Unknown]
  - Dyskinesia [Unknown]
  - Feeling abnormal [Unknown]
  - Lethargy [Unknown]
  - Cough [Unknown]
  - Drug withdrawal syndrome [Unknown]
  - Pain [Unknown]
